FAERS Safety Report 18687271 (Version 2)
Quarter: 2021Q1

REPORT INFORMATION
  Report Type: Spontaneous
  Country: US (occurrence: US)
  Receive Date: 20201231
  Receipt Date: 20210106
  Transmission Date: 20210419
  Serious: No
  Sender: FDA-Public Use
  Company Number: US-SA-2020SA374497

PATIENT

DRUGS (3)
  1. DUPIXENT [Suspect]
     Active Substance: DUPILUMAB
     Indication: HYPERSENSITIVITY
     Dosage: 200 MG, QOW
     Route: 058
     Dates: start: 20191109
  2. DUPIXENT [Suspect]
     Active Substance: DUPILUMAB
     Indication: ASTHMA
     Dosage: 200 MG, QOW
     Route: 058
     Dates: start: 2018
  3. DUPIXENT [Suspect]
     Active Substance: DUPILUMAB
     Indication: ECZEMA

REACTIONS (3)
  - Product storage error [Unknown]
  - Product dose omission issue [Unknown]
  - Product use in unapproved indication [Unknown]

NARRATIVE: CASE EVENT DATE: 2018
